FAERS Safety Report 23951088 (Version 1)
Quarter: 2024Q2

REPORT INFORMATION
  Report Type: Spontaneous
  Country: US (occurrence: US)
  Receive Date: 20240607
  Receipt Date: 20240607
  Transmission Date: 20240716
  Serious: No
  Sender: FDA-Public Use
  Company Number: US-SPRINGWORKS THERAPEUTICS-SW-001599

PATIENT
  Sex: Male

DRUGS (1)
  1. OGSIVEO [Suspect]
     Active Substance: NIROGACESTAT HYDROBROMIDE
     Indication: Product used for unknown indication
     Dosage: UNK
     Dates: start: 20240421

REACTIONS (4)
  - Cough [Unknown]
  - Upper respiratory tract infection [Recovered/Resolved]
  - Influenza like illness [Unknown]
  - Rash [Unknown]
